FAERS Safety Report 15436659 (Version 16)
Quarter: 2022Q2

REPORT INFORMATION
  Report Type: Spontaneous
  Country: US (occurrence: US)
  Receive Date: 20180927
  Receipt Date: 20220421
  Transmission Date: 20220721
  Serious: Yes (Other)
  Sender: FDA-Public Use
  Company Number: US-PFIZER INC-2018389490

PATIENT
  Age: 60 Year
  Sex: Female
  Weight: 104.26 kg

DRUGS (17)
  1. LYRICA [Suspect]
     Active Substance: PREGABALIN
     Indication: Sleep disorder
     Dosage: 600 MG, DAILY (150MG-MORNING, 200MG-AFTERNOON, 250MG-EVENING)
     Dates: start: 2018
  2. LYRICA [Suspect]
     Active Substance: PREGABALIN
     Indication: Diabetic neuropathy
     Dosage: 600 MG, DAILY (150MG TWICE A DAY AND 100MG THRICE A DAY)
  3. LYRICA [Suspect]
     Active Substance: PREGABALIN
     Indication: Fibromyalgia
     Dosage: 300 MG, DAILY (2 100MG CAPSULES AT 2PM, 1 CAPSULE AT 9PM)
  4. LYRICA [Suspect]
     Active Substance: PREGABALIN
     Indication: Pain
     Dosage: 600 MG, DAILY (150MG: 1 AT 6AM, 1 AT 9PM; 100MG: 2 AT 2PM, 1 AT 9PM)
     Route: 048
  5. ALEVE [Concomitant]
     Active Substance: NAPROXEN SODIUM
     Indication: Pain
     Dosage: 220 MG, AS NEEDED
  6. ALEVE [Concomitant]
     Active Substance: NAPROXEN SODIUM
     Indication: Headache
  7. AMLODIPINE [Concomitant]
     Active Substance: AMLODIPINE BESYLATE
     Indication: Hypertension
     Dosage: 10 MG, 1X/DAY (AT BEDTIME)
  8. ATORVASTATIN [Concomitant]
     Active Substance: ATORVASTATIN
     Indication: Blood cholesterol increased
     Dosage: 40 MG, 1X/DAY (BEFORE BED)
  9. HUMALOG [Concomitant]
     Active Substance: INSULIN LISPRO
     Indication: Diabetes mellitus
     Dosage: 20 IU (BEFORE EACH MEAL)
  10. LANTUS [Concomitant]
     Active Substance: INSULIN GLARGINE
     Indication: Diabetes mellitus
     Dosage: 60 IU, DAILY (AT NIGHT)
  11. LISINOPRIL [Concomitant]
     Active Substance: LISINOPRIL
     Indication: Hypertension
     Dosage: 20 MG, 1X/DAY
  12. METFORMIN [Concomitant]
     Active Substance: METFORMIN HYDROCHLORIDE
     Indication: Diabetes mellitus
     Dosage: 1000 MG, 2X/DAY (TWICE DAILY)
  13. TRAMADOL [Concomitant]
     Active Substance: TRAMADOL
     Dosage: 600 MG, DAILY (600 MG A DAY)
  14. TRAMADOL [Concomitant]
     Active Substance: TRAMADOL
     Dosage: UNK, 4X/DAY
  15. TRAMADOL [Concomitant]
     Active Substance: TRAMADOL
     Dosage: 200 MG
  16. TRAMADOL [Concomitant]
     Active Substance: TRAMADOL
     Dosage: 150 MG, DAILY
  17. TRAMADOL [Concomitant]
     Active Substance: TRAMADOL
     Dosage: 50 MG, 3X/DAY
     Route: 048

REACTIONS (24)
  - Drug dependence [Unknown]
  - Withdrawal syndrome [Not Recovered/Not Resolved]
  - Suicidal ideation [Recovered/Resolved]
  - Limb injury [Unknown]
  - Therapeutic product effect incomplete [Unknown]
  - Nervousness [Unknown]
  - Burning sensation [Unknown]
  - Hyperhidrosis [Unknown]
  - Chills [Recovered/Resolved]
  - Malaise [Recovering/Resolving]
  - Gait disturbance [Recovered/Resolved]
  - Nasopharyngitis [Recovering/Resolving]
  - Pain [Recovering/Resolving]
  - Sneezing [Recovering/Resolving]
  - Cough [Recovering/Resolving]
  - Rhinorrhoea [Unknown]
  - Oropharyngeal pain [Unknown]
  - Tonsillar erythema [Unknown]
  - Dysphonia [Unknown]
  - Asthma [Unknown]
  - Dysstasia [Unknown]
  - Feeling abnormal [Unknown]
  - Stress [Unknown]
  - Palpitations [Unknown]

NARRATIVE: CASE EVENT DATE: 20190101
